FAERS Safety Report 9798579 (Version 1)
Quarter: 2014Q1

REPORT INFORMATION
  Report Type: Spontaneous
  Country: US (occurrence: US)
  Receive Date: 20140106
  Receipt Date: 20140106
  Transmission Date: 20141002
  Serious: No
  Sender: FDA-Public Use
  Company Number: US-TEVA-451026USA

PATIENT
  Sex: Female
  Weight: 61.74 kg

DRUGS (19)
  1. AZILECT [Suspect]
     Indication: PARKINSON^S DISEASE
  2. CARBIDOPA/LEVODOPA XR [Concomitant]
     Indication: PARKINSON^S DISEASE
     Dosage: 50/200 MG
     Route: 048
  3. CARBIDOPA/LEVODOPA IR [Concomitant]
     Indication: PARKINSON^S DISEASE
     Dosage: 12.5/50 MG
     Route: 048
  4. MIRAPEX [Concomitant]
     Indication: PARKINSON^S DISEASE
  5. LOPRESSOR [Concomitant]
     Indication: HYPERTENSION
     Dosage: 200 MILLIGRAM DAILY;
     Route: 048
  6. LOSARTAN [Concomitant]
     Indication: HYPERTENSION
     Dosage: 50 MILLIGRAM DAILY;
     Route: 048
  7. HCTZ [Concomitant]
     Indication: HYPERTENSION
     Dosage: 5.3571 MILLIGRAM DAILY;
     Route: 048
  8. SIMVASTATIN [Concomitant]
     Indication: BLOOD CHOLESTEROL
     Route: 048
  9. BABY ASPIRIN [Concomitant]
     Indication: PROPHYLAXIS
     Route: 048
  10. ATIVAN [Concomitant]
     Indication: INSOMNIA
     Route: 048
  11. ATIVAN [Concomitant]
     Indication: ANXIETY
  12. FISH OIL [Concomitant]
  13. MULTIVITAMIN [Concomitant]
  14. VITAMIN B12 [Concomitant]
     Indication: PARKINSON^S DISEASE
     Route: 060
  15. VITAMIN D3 [Concomitant]
     Indication: PARKINSON^S DISEASE
  16. CALCIUM CITRATE [Concomitant]
     Indication: BONE DISORDER
  17. GLUCOSAMINE CHONDROITIN [Concomitant]
     Indication: ARTHROPATHY
  18. STOOL SOFTENER [Concomitant]
     Indication: CONSTIPATION
  19. CURCUMIN [Concomitant]
     Indication: PARKINSON^S DISEASE

REACTIONS (9)
  - Initial insomnia [Not Recovered/Not Resolved]
  - Insomnia [Not Recovered/Not Resolved]
  - Dry mouth [Recovered/Resolved]
  - Diarrhoea [Recovered/Resolved]
  - Diarrhoea [Recovered/Resolved]
  - Dizziness [Not Recovered/Not Resolved]
  - Hot flush [Not Recovered/Not Resolved]
  - Abdominal pain upper [Recovered/Resolved]
  - Nausea [Recovered/Resolved]
